FAERS Safety Report 4821823-0 (Version None)
Quarter: 2005Q4

REPORT INFORMATION
  Report Type: 
  Country: None (occurrence: None)
  Receive Date: 20051102
  Receipt Date: 20051018
  Transmission Date: 20060501
  Serious: Yes (Other)
  Sender: FDA-Public Use
  Company Number: EWC051046679

PATIENT
  Age: 6 Year
  Sex: Male
  Weight: 30 kg

DRUGS (2)
  1. ATOMOXETINE HYDROCHLORIDE [Suspect]
     Indication: ATTENTION DEFICIT/HYPERACTIVITY DISORDER
     Dosage: 40 MG/1 DAY
     Dates: start: 20050801, end: 20050930
  2. DIPIPERON (PIPAMPERONE HYDROCHLORIDE) [Concomitant]

REACTIONS (3)
  - DEPRESSION [None]
  - EPILEPSY [None]
  - PYREXIA [None]
